FAERS Safety Report 9148728 (Version 1)
Quarter: 2013Q1

REPORT INFORMATION
  Report Type: Spontaneous
  Country: AR (occurrence: AR)
  Receive Date: 20130308
  Receipt Date: 20130308
  Transmission Date: 20140127
  Serious: Yes (Hospitalization)
  Sender: FDA-Public Use
  Company Number: AR-B.I. PHARMACEUTICALS,INC./RIDGEFIELD-2013-RA-00042RA

PATIENT
  Age: 48 Year
  Sex: Male

DRUGS (5)
  1. PRADAXA [Suspect]
     Indication: THROMBOSIS PROPHYLAXIS
     Dosage: 220 MG
     Route: 048
     Dates: start: 201110, end: 201110
  2. ERYTHROPOIETIN [Concomitant]
     Indication: ANAEMIA
     Dosage: 2.5 MG
     Route: 058
     Dates: start: 201110, end: 201110
  3. IRON [Concomitant]
     Indication: ANAEMIA
     Route: 042
     Dates: start: 201110, end: 201110
  4. ENOXAPARIN [Concomitant]
     Indication: THROMBOSIS PROPHYLAXIS
     Dosage: 40 MG
     Route: 058
     Dates: start: 201110, end: 201110
  5. FONDAPARINUX [Concomitant]
     Indication: THROMBOSIS PROPHYLAXIS
     Dosage: 2.5 MG
     Route: 058
     Dates: start: 201110, end: 201110

REACTIONS (1)
  - Pulmonary embolism [Recovered/Resolved]
